FAERS Safety Report 13348309 (Version 3)
Quarter: 2018Q2

REPORT INFORMATION
  Report Type: Report from Study
  Country: BR (occurrence: BR)
  Receive Date: 20170319
  Receipt Date: 20180417
  Transmission Date: 20180711
  Serious: Yes (Hospitalization)
  Sender: FDA-Public Use
  Company Number: PHHY2017BR038416

PATIENT
  Age: 50 Year
  Sex: Female
  Weight: 67 kg

DRUGS (10)
  1. COSENTYX [Suspect]
     Active Substance: SECUKINUMAB
     Dosage: 150 MG, QMO
     Route: 058
     Dates: start: 201701
  2. CODEINE [Concomitant]
     Active Substance: CODEINE
     Indication: ANKYLOSING SPONDYLITIS
     Dosage: 15 MG, QD
     Route: 048
     Dates: start: 1997
  3. CYCLOBENZAPRINE. [Concomitant]
     Active Substance: CYCLOBENZAPRINE
     Indication: ANKYLOSING SPONDYLITIS
     Dosage: 5 MG, QD
     Route: 048
     Dates: start: 1997
  4. COSENTYX [Suspect]
     Active Substance: SECUKINUMAB
     Indication: ANKYLOSING SPONDYLITIS
     Dosage: 150 MG, QW
     Route: 058
  5. COSENTYX [Suspect]
     Active Substance: SECUKINUMAB
     Dosage: 150 MG, QW
     Route: 058
     Dates: start: 20170204
  6. ATORVASTATIN CALCIUM. [Concomitant]
     Active Substance: ATORVASTATIN CALCIUM
     Indication: PROPHYLAXIS
     Dosage: 80 MG, QD
     Route: 048
     Dates: start: 201703
  7. COSENTYX [Suspect]
     Active Substance: SECUKINUMAB
     Dosage: 150 MG, QW
     Route: 058
     Dates: start: 20170324
  8. COSENTYX [Suspect]
     Active Substance: SECUKINUMAB
     Dosage: 150 MG, QW
     Route: 058
     Dates: start: 20170310
  9. RANITIDINE. [Concomitant]
     Active Substance: RANITIDINE
     Indication: ANKYLOSING SPONDYLITIS
     Dosage: 150 MG, QD
     Route: 048
     Dates: start: 1997
  10. COSENTYX [Suspect]
     Active Substance: SECUKINUMAB
     Dosage: 150 MG, QW
     Route: 058
     Dates: start: 20170317

REACTIONS (8)
  - Cardiac disorder [Unknown]
  - Chest pain [Recovering/Resolving]
  - Arthralgia [Recovering/Resolving]
  - Pharyngitis [Recovering/Resolving]
  - Infarction [Recovering/Resolving]
  - Pain [Unknown]
  - Myocardial ischaemia [Recovering/Resolving]
  - Peripheral swelling [Unknown]

NARRATIVE: CASE EVENT DATE: 201703
